FAERS Safety Report 15414639 (Version 3)
Quarter: 2018Q4

REPORT INFORMATION
  Report Type: Report from Study
  Country: FR (occurrence: FR)
  Receive Date: 20180921
  Receipt Date: 20181019
  Transmission Date: 20190204
  Serious: Yes (Death, Life-Threatening, Hospitalization)
  Sender: FDA-Public Use
  Company Number: FR-PFIZER INC-2018381359

PATIENT
  Age: 67 Year
  Sex: Male
  Weight: 70 kg

DRUGS (10)
  1. IRINOTECAN HCL [Suspect]
     Active Substance: IRINOTECAN HYDROCHLORIDE
     Dosage: 570 MG TOTAL DAILY DOSE, CYCLE 2
     Route: 041
     Dates: start: 20180814, end: 20180910
  2. IRINOTECAN HCL [Suspect]
     Active Substance: IRINOTECAN HYDROCHLORIDE
     Indication: SMALL CELL LUNG CANCER
     Dosage: UNK UNK, CYCLIC
     Route: 041
     Dates: start: 20180725
  3. LYRICA [Concomitant]
     Active Substance: PREGABALIN
  4. KARDEGIC [Concomitant]
     Active Substance: ASPIRIN DL-LYSINE
  5. ATORVASTATINE [ATORVASTATIN] [Concomitant]
  6. METFORMINE [METFORMIN] [Concomitant]
     Active Substance: METFORMIN HYDROCHLORIDE
  7. COVERAM [Concomitant]
     Active Substance: AMLODIPINE\PERINDOPRIL
  8. BISOPROLOL [Concomitant]
     Active Substance: BISOPROLOL
  9. ALLOPURINOL. [Concomitant]
     Active Substance: ALLOPURINOL
  10. GALVUS [Concomitant]
     Active Substance: VILDAGLIPTIN

REACTIONS (2)
  - Pneumocystis jirovecii pneumonia [Fatal]
  - Lung disorder [Fatal]

NARRATIVE: CASE EVENT DATE: 20180910
